FAERS Safety Report 25100019 (Version 1)
Quarter: 2025Q1

REPORT INFORMATION
  Report Type: Spontaneous
  Country: RO (occurrence: RO)
  Receive Date: 20250320
  Receipt Date: 20250320
  Transmission Date: 20250409
  Serious: Yes (Other)
  Sender: PFIZER
  Company Number: RO-PFIZER INC-PV202500032915

PATIENT
  Age: 53 Year
  Sex: Female

DRUGS (8)
  1. MYLOTARG [Suspect]
     Active Substance: GEMTUZUMAB OZOGAMICIN
  2. DAUNORUBICIN [Suspect]
     Active Substance: DAUNORUBICIN
  3. CYTARABINE [Suspect]
     Active Substance: CYTARABINE
  4. CYTARABINE [Suspect]
     Active Substance: CYTARABINE
  5. CYTARABINE [Suspect]
     Active Substance: CYTARABINE
  6. AZACITIDINE [Concomitant]
     Active Substance: AZACITIDINE
  7. ACYCLOVIR [Concomitant]
     Active Substance: ACYCLOVIR
     Indication: Prophylaxis
  8. SULFAMETHOXAZOLE\TRIMETHOPRIM [Concomitant]
     Active Substance: SULFAMETHOXAZOLE\TRIMETHOPRIM
     Indication: Prophylaxis

REACTIONS (8)
  - Anaemia [Unknown]
  - Febrile neutropenia [Unknown]
  - Furuncle [Unknown]
  - Thrombocytopenia [Unknown]
  - Bone marrow failure [Unknown]
  - Rash pruritic [Unknown]
  - Anal fistula [Unknown]
  - COVID-19 [Unknown]
